FAERS Safety Report 5596515-3 (Version None)
Quarter: 2007Q4

REPORT INFORMATION
  Report Type: 
  Country: None (occurrence: None)
  Receive Date: 20071219
  Receipt Date: 20070830
  Transmission Date: 20080405
  Serious: No
  Sender: FDA-Public Use
  Company Number: HQWYE032606SEP07

PATIENT
  Age: 44 Year
  Sex: Female
  Weight: 118.04 kg

DRUGS (10)
  1. TORISEL [Suspect]
     Indication: RENAL CELL CARCINOMA STAGE UNSPECIFIED
     Dosage: 25 MG 1X PER 1 WK, INTRAVENOUS
     Route: 042
     Dates: start: 20070810
  2. CLONIDINE [Concomitant]
  3. ATACAND [Concomitant]
  4. PROTONIX [Concomitant]
  5. SYNTHROID [Concomitant]
  6. DURAGESIC-100 [Concomitant]
  7. VICODIN [Concomitant]
  8. BENADRYL [Concomitant]
  9. ZOFRAN [Concomitant]
  10. DILAUDID [Concomitant]

REACTIONS (3)
  - ASTHENIA [None]
  - DRY SKIN [None]
  - FEELING ABNORMAL [None]
